FAERS Safety Report 15330301 (Version 1)
Quarter: 2018Q3

REPORT INFORMATION
  Report Type: Spontaneous
  Country: US (occurrence: US)
  Receive Date: 20180824
  Receipt Date: 20180824
  Transmission Date: 20181010
  Serious: Yes (Disabling)
  Sender: FDA-Public Use
  Company Number: None

PATIENT
  Age: 30 Year
  Sex: Female
  Weight: 81 kg

DRUGS (25)
  1. EPIPEN [Concomitant]
     Active Substance: EPINEPHRINE
  2. TAMSULOSIN [Concomitant]
     Active Substance: TAMSULOSIN
  3. PREDNISONE. [Concomitant]
     Active Substance: PREDNISONE
  4. VITAMIN C [Concomitant]
     Active Substance: ASCORBIC ACID
  5. VALERIAN ROOT [Concomitant]
     Active Substance: VALERIAN
  6. VENTOLIN HFA [Concomitant]
     Active Substance: ALBUTEROL SULFATE
  7. SIMVISTATIN [Concomitant]
     Active Substance: SIMVASTATIN
  8. OMEPRAZOLE. [Concomitant]
     Active Substance: OMEPRAZOLE
  9. BENADRYL ULTRATABS [Suspect]
     Active Substance: DIPHENHYDRAMINE HYDROCHLORIDE
     Indication: HYPERSENSITIVITY
     Dosage: ?          QUANTITY:48 TABLET(S);?
     Route: 048
     Dates: start: 20050101, end: 20170101
  10. ONDANSETRON [Concomitant]
     Active Substance: ONDANSETRON
  11. NAPROXEN. [Concomitant]
     Active Substance: NAPROXEN
  12. CYPROHEPTADINE. [Concomitant]
     Active Substance: CYPROHEPTADINE
  13. GABAPENTIN BENZONATATE [Concomitant]
  14. CITALOPRAM [Concomitant]
     Active Substance: CITALOPRAM HYDROBROMIDE
  15. PEPPERMINT TEA [Concomitant]
  16. NIACIN. [Concomitant]
     Active Substance: NIACIN
  17. EXLAX [Concomitant]
  18. DULCOLAX NOS [Concomitant]
     Active Substance: BISACODYL OR DOCUSATE SODIUM
  19. JUNEL FE 1/20 [Concomitant]
     Active Substance: ETHINYL ESTRADIOL\NORETHINDRONE ACETATE
  20. MAXAIR AUTOHALER [Concomitant]
     Active Substance: PIRBUTEROL ACETATE
  21. VITAMIN A [Concomitant]
     Active Substance: VITAMIN A
  22. HYDROXYZINE [Concomitant]
     Active Substance: HYDROXYZINE HYDROCHLORIDE
  23. MODAFINIL. [Concomitant]
     Active Substance: MODAFINIL
  24. VITAMIN B [Concomitant]
     Active Substance: VITAMIN B
  25. PRUNE JUICE [Concomitant]

REACTIONS (1)
  - Urinary retention [None]

NARRATIVE: CASE EVENT DATE: 20160101
